FAERS Safety Report 4941648-5 (Version None)
Quarter: 2006Q1

REPORT INFORMATION
  Report Type: 
  Country: None (occurrence: None)
  Receive Date: 20060313
  Receipt Date: 20060110
  Transmission Date: 20060701
  Serious: Yes (Other)
  Sender: FDA-Public Use
  Company Number: DK-ROCHE-431370

PATIENT
  Age: 65 Year
  Sex: Female
  Weight: 86 kg

DRUGS (2)
  1. XENICAL [Suspect]
     Indication: OBESITY
     Dosage: DOSAGE REGIMEN REPORTED AS 1 X 2.
     Route: 048
     Dates: start: 20000401
  2. MERIDIA [Concomitant]
     Indication: OBESITY

REACTIONS (3)
  - BILIARY COLIC [None]
  - CHOLELITHIASIS [None]
  - ECZEMA [None]
